FAERS Safety Report 4877952-9 (Version None)
Quarter: 2006Q1

REPORT INFORMATION
  Report Type: 
  Country: None (occurrence: None)
  Receive Date: 20060110
  Receipt Date: 20051229
  Transmission Date: 20060701
  Serious: Yes (Other)
  Sender: FDA-Public Use
  Company Number: 2003123480

PATIENT
  Sex: Female

DRUGS (3)
  1. NARDIL [Suspect]
     Indication: ANXIETY
     Dosage: 45 MG (45 MG, 3 IN 1 D), ORAL
     Route: 048
     Dates: end: 20051201
  2. NARDIL [Suspect]
     Indication: DEPRESSION
     Dosage: 45 MG (45 MG, 3 IN 1 D), ORAL
     Route: 048
     Dates: end: 20051201
  3. NEXIUM [Concomitant]

REACTIONS (8)
  - AMNESIA [None]
  - DEPRESSION [None]
  - DRUG EFFECT DECREASED [None]
  - DYSPEPSIA [None]
  - HIP ARTHROPLASTY [None]
  - INSOMNIA [None]
  - RASH [None]
  - WEIGHT INCREASED [None]
